FAERS Safety Report 16908484 (Version 1)
Quarter: 2019Q4

REPORT INFORMATION
  Report Type: Spontaneous
  Country: US (occurrence: US)
  Receive Date: 20191011
  Receipt Date: 20191011
  Transmission Date: 20200122
  Serious: No
  Sender: FDA-Public Use
  Company Number: US-VERTEX PHARMACEUTICALS-2019-009630

PATIENT
  Sex: Female

DRUGS (7)
  1. SYMDEKO [Suspect]
     Active Substance: IVACAFTOR\TEZACAFTOR
     Indication: CYSTIC FIBROSIS
     Dosage: TEZACAFTOR 100MG/ IVACAFTOR 150 MG/150 MG IVACAFTOR, BID
     Route: 048
  2. VITAMIN D3 [Concomitant]
     Active Substance: CHOLECALCIFEROL
     Dosage: 1000 UNIT DAILY
     Route: 048
  3. HUMALOG [Concomitant]
     Active Substance: INSULIN LISPRO
     Dosage: 100 UNIT/ML VIAL
  4. PULMOZYME [Concomitant]
     Active Substance: DORNASE ALFA
     Dosage: 1 MILLIGRAM PER MILLILITRE VIA NEBULIZER DAILY
  5. VITAMIN B12 [COBAMAMIDE] [Concomitant]
     Dosage: 1000 MICROGRAM
     Route: 048
  6. ALBUTEROL SULFATE. [Concomitant]
     Active Substance: ALBUTEROL SULFATE
     Dosage: NEBULIZER TWICE DAILY
  7. IRON [Concomitant]
     Active Substance: IRON
     Dosage: 18 MG DAILY
     Route: 048

REACTIONS (2)
  - Infection [Not Recovered/Not Resolved]
  - Infective pulmonary exacerbation of cystic fibrosis [Not Recovered/Not Resolved]

NARRATIVE: CASE EVENT DATE: 2019
